FAERS Safety Report 8481643-5 (Version None)
Quarter: 2012Q3

REPORT INFORMATION
  Report Type: 
  Country: None (occurrence: None)
  Receive Date: 20120702
  Receipt Date: 20120625
  Transmission Date: 20120928
  Serious: No
  Sender: FDA-Public Use
  Company Number: US-BAYER-2012-064335

PATIENT

DRUGS (3)
  1. ACETAMINOPHEN [Concomitant]
     Indication: DYSMENORRHOEA
  2. IBUPROFEN (ADVIL) [Concomitant]
     Indication: DYSMENORRHOEA
  3. ALEVE (CAPLET) [Suspect]
     Indication: DYSMENORRHOEA
     Route: 048

REACTIONS (1)
  - DYSMENORRHOEA [None]
